FAERS Safety Report 7276679-6 (Version None)
Quarter: 2011Q1

REPORT INFORMATION
  Report Type: 
  Country: None (occurrence: None)
  Receive Date: 20110204
  Receipt Date: 20110201
  Transmission Date: 20110831
  Serious: Yes (Death)
  Sender: FDA-Public Use
  Company Number: FR-MERCK-1102FRA00015

PATIENT
  Age: 85 Year
  Sex: Male
  Weight: 46 kg

DRUGS (3)
  1. METFORMIN [Concomitant]
     Indication: TYPE 2 DIABETES MELLITUS
     Route: 048
  2. METFORMIN HYDROCHLORIDE AND PIOGLITAZONE HYDROCHLORIDE [Concomitant]
     Indication: TYPE 2 DIABETES MELLITUS
     Route: 048
  3. JANUVIA [Suspect]
     Indication: TYPE 2 DIABETES MELLITUS
     Route: 048
     Dates: start: 20100329

REACTIONS (4)
  - STREPTOCOCCAL SEPSIS [None]
  - URINARY RETENTION [None]
  - SEPTIC SHOCK [None]
  - MULTI-ORGAN FAILURE [None]
